FAERS Safety Report 5331905-5 (Version None)
Quarter: 2007Q2

REPORT INFORMATION
  Report Type: 
  Country: None (occurrence: None)
  Receive Date: 20070518
  Receipt Date: 20070508
  Transmission Date: 20071010
  Serious: Yes (Hospitalization, Other)
  Sender: FDA-Public Use
  Company Number: 220011M07USA

PATIENT
  Age: 10 Year
  Sex: Male

DRUGS (1)
  1. SAIZEN [Suspect]
     Indication: GROWTH HORMONE DEFICIENCY
     Dates: start: 20031001, end: 20070507

REACTIONS (4)
  - BLAST CELLS PRESENT [None]
  - BONE PAIN [None]
  - LEUKAEMIA [None]
  - PYREXIA [None]
